FAERS Safety Report 11727549 (Version 3)
Quarter: 2015Q4

REPORT INFORMATION
  Report Type: Spontaneous
  Country: US (occurrence: US)
  Receive Date: 20151112
  Receipt Date: 20151229
  Transmission Date: 20160304
  Serious: Yes (Other)
  Sender: FDA-Public Use
  Company Number: US-PFIZER INC-2015379907

PATIENT
  Sex: Female

DRUGS (10)
  1. SULFASALAZINE. [Suspect]
     Active Substance: SULFASALAZINE
     Indication: AUTOIMMUNE DISORDER
     Dosage: 500-1000MG, 2X/DAY
     Dates: start: 20150929, end: 20151104
  2. METHOTREXATE [Concomitant]
     Active Substance: METHOTREXATE
     Dosage: UNK, WEEKLY (10-2.5 MG EVERY TUESDAY)
  3. OMEPRAZOLE. [Concomitant]
     Active Substance: OMEPRAZOLE
     Dosage: 40 MG, 1X/DAY
  4. BUPROPION. [Concomitant]
     Active Substance: BUPROPION
     Dosage: 150 MG, 2X/DAY
  5. FOLIC ACID. [Concomitant]
     Active Substance: FOLIC ACID
     Dosage: 1 MG, 1X/DAY
  6. TRAZODONE [Concomitant]
     Active Substance: TRAZODONE HYDROCHLORIDE
     Dosage: 100 MG, 1X/DAY
  7. GABAPENTIN. [Concomitant]
     Active Substance: GABAPENTIN
     Dosage: 800 MG, 3X/DAY
  8. LEVOTHYROXINE. [Concomitant]
     Active Substance: LEVOTHYROXINE
     Dosage: 150 UG, 1X/DAY
  9. CYCLOBENZAPRINE [Concomitant]
     Active Substance: CYCLOBENZAPRINE
     Dosage: 10 MG, 3X/DAY
  10. SULFASALAZINE. [Suspect]
     Active Substance: SULFASALAZINE
     Indication: SPONDYLOARTHROPATHY

REACTIONS (1)
  - Blood pressure increased [Recovered/Resolved]

NARRATIVE: CASE EVENT DATE: 20150929
